FAERS Safety Report 10418645 (Version 1)
Quarter: 2014Q3

REPORT INFORMATION
  Report Type: Spontaneous
  Country: US (occurrence: None)
  Receive Date: 20140709
  Receipt Date: 20140709
  Transmission Date: 20150326
  Serious: No
  Sender: FDA-Public Use
  Company Number: 2014TUS001715

PATIENT
  Age: 58 Year
  Sex: Female
  Weight: 62 kg

DRUGS (3)
  1. BRINTELLIX [Suspect]
     Active Substance: VORTIOXETINE HYDROBROMIDE
     Indication: DEPRESSION
     Route: 048
     Dates: start: 20140206
  2. BRINTELLIX [Suspect]
     Active Substance: VORTIOXETINE HYDROBROMIDE
     Indication: MAJOR DEPRESSION
     Route: 048
     Dates: start: 20140206
  3. XANAX [Suspect]
     Active Substance: ALPRAZOLAM
     Route: 048

REACTIONS (1)
  - Headache [None]
